FAERS Safety Report 6912228-7 (Version None)
Quarter: 2010Q3

REPORT INFORMATION
  Report Type: 
  Country: None (occurrence: None)
  Receive Date: 20100806
  Receipt Date: 20080324
  Transmission Date: 20110219
  Serious: No
  Sender: FDA-Public Use
  Company Number: US-PFIZER INC-2008006746

PATIENT
  Sex: Female
  Weight: 77.11 kg

DRUGS (4)
  1. DETROL LA [Suspect]
     Indication: URINARY INCONTINENCE
  2. NORVASC [Concomitant]
  3. THYROID TAB [Concomitant]
  4. CENTRUM SILVER [Concomitant]

REACTIONS (1)
  - DRUG EFFECT DECREASED [None]
